FAERS Safety Report 20828300 (Version 3)
Quarter: 2022Q3

REPORT INFORMATION
  Report Type: Spontaneous
  Country: US (occurrence: US)
  Receive Date: 20220513
  Receipt Date: 20220923
  Transmission Date: 20221027
  Serious: No
  Sender: FDA-Public Use
  Company Number: US-SA-SAC20220506001815

PATIENT
  Sex: Male

DRUGS (11)
  1. DUPIXENT [Suspect]
     Active Substance: DUPILUMAB
     Indication: Asthma
     Dosage: 200 MG, QOW
     Route: 058
  2. DUPIXENT [Suspect]
     Active Substance: DUPILUMAB
     Dosage: 300 MG, QOW
     Route: 058
     Dates: start: 20220721
  3. ASPIRIN [Concomitant]
     Active Substance: ASPIRIN
  4. BUDESONIDE [Concomitant]
     Active Substance: BUDESONIDE
  5. BUPROPION [Concomitant]
     Active Substance: BUPROPION
  6. LANSOPRAZOLE [Concomitant]
     Active Substance: LANSOPRAZOLE
  7. OXYBUTYNIN [Concomitant]
     Active Substance: OXYBUTYNIN
  8. PREDNISONE [Concomitant]
     Active Substance: PREDNISONE
  9. SINGULAIR [Concomitant]
     Active Substance: MONTELUKAST SODIUM
  10. SYMBICORT [Concomitant]
     Active Substance: BUDESONIDE\FORMOTEROL FUMARATE DIHYDRATE
     Dosage: SYMBICORT AER 160-4.5
  11. LEVOTHYROXINE [Concomitant]
     Active Substance: LEVOTHYROXINE

REACTIONS (2)
  - Impaired quality of life [Not Recovered/Not Resolved]
  - COVID-19 [Not Recovered/Not Resolved]
